FAERS Safety Report 8954293 (Version 1)
Quarter: 2012Q4

REPORT INFORMATION
  Report Type: 
  Country: US (occurrence: US)
  Receive Date: 20121207
  Receipt Date: 20121207
  Transmission Date: 20130627
  Serious: Yes (Other)
  Sender: FDA-Public Use
  Company Number: US-ACTELION-A-US2012-75591

PATIENT
  Age: 71 Year
  Sex: Female

DRUGS (4)
  1. TRACLEER [Suspect]
     Indication: PULMONARY ARTERIAL HYPERTENSION
     Dosage: UNK
     Route: 048
     Dates: start: 2010
  2. OXYGEN [Concomitant]
  3. SPIRIVA [Concomitant]
  4. PROAIR [Concomitant]

REACTIONS (2)
  - Pulmonary oedema [Unknown]
  - Diabetes mellitus [Unknown]
